FAERS Safety Report 20151268 (Version 1)
Quarter: 2021Q4

REPORT INFORMATION
  Report Type: Spontaneous
  Country: US (occurrence: US)
  Receive Date: 20211206
  Receipt Date: 20211206
  Transmission Date: 20220303
  Serious: No
  Sender: FDA-Public Use
  Company Number: US-BAUSCH-BL-2021-039785

PATIENT
  Sex: Female

DRUGS (1)
  1. LACRISERT [Suspect]
     Active Substance: HYDROXYPROPYL CELLULOSE
     Indication: Product used for unknown indication
     Dosage: 1 TIME DAILY - IN EACH EYE
     Route: 065

REACTIONS (2)
  - Instillation site infection [Unknown]
  - Incorrect dose administered [Unknown]
